FAERS Safety Report 8022092-3 (Version None)
Quarter: 2012Q1

REPORT INFORMATION
  Report Type: 
  Country: None (occurrence: None)
  Receive Date: 20120104
  Receipt Date: 20111222
  Transmission Date: 20120608
  Serious: Yes (Other)
  Sender: FDA-Public Use
  Company Number: US-UCBSA-048415

PATIENT
  Age: 73 Year
  Sex: Female

DRUGS (1)
  1. VIMPAT [Suspect]
     Dosage: TABLET STRENGTH :100 MG

REACTIONS (2)
  - CONVULSION [None]
  - DEMENTIA ALZHEIMER'S TYPE [None]
